FAERS Safety Report 10243471 (Version 1)
Quarter: 2014Q2

REPORT INFORMATION
  Report Type: Spontaneous
  Country: US (occurrence: None)
  Receive Date: 20140616
  Receipt Date: 20140616
  Transmission Date: 20141212
  Serious: Yes (Hospitalization)
  Sender: FDA-Public Use
  Company Number: None

PATIENT
  Age: 61 Year
  Sex: Male
  Weight: 86 kg

DRUGS (1)
  1. CETUXIMAB (ERBITUX) (714692) [Suspect]

REACTIONS (5)
  - Hypophagia [None]
  - Decreased appetite [None]
  - Dysphagia [None]
  - Dizziness [None]
  - Dehydration [None]
